FAERS Safety Report 7207955-0 (Version None)
Quarter: 2011Q1

REPORT INFORMATION
  Report Type: 
  Country: None (occurrence: None)
  Receive Date: 20110104
  Receipt Date: 20101224
  Transmission Date: 20110831
  Serious: Yes (Other)
  Sender: FDA-Public Use
  Company Number: JP-PFIZER INC-2010178873

PATIENT
  Age: 3 Day
  Sex: Female

DRUGS (4)
  1. LAC B [Concomitant]
     Dosage: 2 G, 1X/DAY
     Route: 063
  2. MESALAZINE [Concomitant]
     Dosage: 1 G, 1X/DAY
     Route: 063
  3. SALAZOPYRIN [Suspect]
     Dosage: 2000 MG, 1X/DAY
     Route: 063
  4. BIOFERMIN [Concomitant]
     Dosage: 2 G, 1X/DAY
     Route: 063

REACTIONS (2)
  - HYPERBILIRUBINAEMIA NEONATAL [None]
  - DRUG EXPOSURE VIA BREAST MILK [None]
